FAERS Safety Report 26051321 (Version 2)
Quarter: 2025Q4

REPORT INFORMATION
  Report Type: Spontaneous
  Country: US (occurrence: US)
  Receive Date: 20251117
  Receipt Date: 20251231
  Transmission Date: 20260117
  Serious: No
  Sender: TOLMAR
  Company Number: US-Tolmar-TLM-2025-08394

PATIENT

DRUGS (2)
  1. FENSOLVI [Suspect]
     Active Substance: LEUPROLIDE ACETATE
     Indication: Precocious puberty
     Dosage: BOX LOT 15309CUF EXP 09/2026?GTIN 00362935163602?SYRINGE A: 15309AUF EXP 10/2026?SYRINGE B: 15309AUF
  2. DEVICE [Suspect]
     Active Substance: DEVICE
     Indication: Precocious puberty
     Dosage: BOX LOT 15309CUF EXP 09/2026?GTIN 00362935163602?SYRINGE A: 15309AUF EXP 10/2026?SYRINGE B: 15309AUF

REACTIONS (5)
  - Intercepted product preparation error [Unknown]
  - Device occlusion [Unknown]
  - Device issue [Unknown]
  - Wrong technique in product usage process [Unknown]
  - Product quality issue [Unknown]
